FAERS Safety Report 11646159 (Version 1)
Quarter: 2015Q4

REPORT INFORMATION
  Report Type: Report from Study
  Country: AR (occurrence: AR)
  Receive Date: 20151020
  Receipt Date: 20151020
  Transmission Date: 20160304
  Serious: Yes (Hospitalization)
  Sender: FDA-Public Use
  Company Number: AR-BIOMARINAP-AR-2015-107784

PATIENT
  Age: 10 Month
  Sex: Male
  Weight: 8.5 kg

DRUGS (1)
  1. ALDURAZYME [Suspect]
     Active Substance: LARONIDASE
     Indication: MUCOPOLYSACCHARIDOSIS I
     Dosage: 1000 IU, QW
     Route: 042
     Dates: start: 20150819

REACTIONS (2)
  - Dyspnoea [Recovering/Resolving]
  - Secretion discharge [Recovering/Resolving]

NARRATIVE: CASE EVENT DATE: 20151013
